FAERS Safety Report 5796590-7 (Version None)
Quarter: 2008Q2

REPORT INFORMATION
  Report Type: 
  Country: None (occurrence: None)
  Receive Date: 20080627
  Receipt Date: 20080528
  Transmission Date: 20081010
  Serious: Yes (Other)
  Sender: FDA-Public Use
  Company Number: CHPA2008US10408

PATIENT
  Sex: Female

DRUGS (1)
  1. VAGISTAT-1 [Suspect]
     Indication: VULVOVAGINAL MYCOTIC INFECTION
     Dosage: 300 MG, ONCE/SINGLE, VAGINAL
     Route: 067
     Dates: start: 20080301, end: 20080301

REACTIONS (4)
  - FOREIGN BODY TRAUMA [None]
  - INFLAMMATION [None]
  - SMEAR CERVIX ABNORMAL [None]
  - WRONG TECHNIQUE IN DRUG USAGE PROCESS [None]
